FAERS Safety Report 23200579 (Version 1)
Quarter: 2023Q4

REPORT INFORMATION
  Report Type: Spontaneous
  Country: US (occurrence: US)
  Receive Date: 20231118
  Receipt Date: 20231118
  Transmission Date: 20240110
  Serious: Yes (Death, Other)
  Sender: FDA-Public Use
  Company Number: US-ENDO-CASE-0042621

PATIENT
  Sex: Female

DRUGS (4)
  1. ACETAMINOPHEN\HYDROCODONE BITARTRATE [Suspect]
     Active Substance: ACETAMINOPHEN\HYDROCODONE BITARTRATE
  2. ALPRAZOLAM [Suspect]
     Active Substance: ALPRAZOLAM
  3. HYDROCODONE BITARTRATE\IBUPROFEN [Suspect]
     Active Substance: HYDROCODONE BITARTRATE\IBUPROFEN
  4. HYDROCODONE [Suspect]
     Active Substance: HYDROCODONE

REACTIONS (4)
  - Death [Fatal]
  - Dependence [Unknown]
  - Accidental overdose [Unknown]
  - Overdose [Unknown]
